FAERS Safety Report 4374309-4 (Version None)
Quarter: 2004Q2

REPORT INFORMATION
  Report Type: 
  Country: None (occurrence: None)
  Receive Date: 20040608
  Receipt Date: 20040608
  Transmission Date: 20050107
  Serious: Yes (Hospitalization)
  Sender: FDA-Public Use
  Company Number: None

PATIENT
  Sex: Male
  Weight: 112.4921 kg

DRUGS (7)
  1. INTERLEUKIN-2 [Suspect]
     Indication: MALIGNANT MELANOMA
     Dosage: 45 MIU Q8H/14 DOS IV
     Route: 042
     Dates: start: 20030729, end: 20040305
  2. GP 100 MELANOMA PEPTIDE -G209-2M [Suspect]
     Indication: MALIGNANT MELANOMA
     Dosage: 2 MLS Q 3 WEEKS SQ
     Route: 058
     Dates: start: 20030728, end: 20040504
  3. ALEVE [Concomitant]
  4. BENADRYL [Concomitant]
  5. GLUCOSAMINE [Concomitant]
  6. TYLENONE COLD [Concomitant]
  7. PREDISPOSED [Concomitant]

REACTIONS (5)
  - BETA HAEMOLYTIC STREPTOCOCCAL INFECTION [None]
  - ERYTHEMA [None]
  - JOINT SWELLING [None]
  - NEPHRITIS INTERSTITIAL [None]
  - SKIN LESION [None]
